FAERS Safety Report 9395038 (Version 1)
Quarter: 2013Q3

REPORT INFORMATION
  Report Type: Report from Study
  Country: TN (occurrence: TN)
  Receive Date: 20130711
  Receipt Date: 20130711
  Transmission Date: 20140515
  Serious: Yes (Death)
  Sender: FDA-Public Use
  Company Number: TN-SANOFI-AVENTIS-2013SA068426

PATIENT
  Age: 73 Year
  Sex: Male

DRUGS (6)
  1. PLAVIX [Suspect]
     Indication: ACUTE CORONARY SYNDROME
     Route: 048
     Dates: start: 20121009, end: 20130322
  2. ASPEGIC [Concomitant]
     Route: 065
     Dates: end: 20130322
  3. DAONIL [Concomitant]
     Route: 065
     Dates: end: 20130307
  4. INSULATARD [Concomitant]
     Route: 065
     Dates: start: 20130307, end: 20130322
  5. ATORVASTATIN [Concomitant]
     Route: 065
     Dates: end: 20130322
  6. ENALAPRIL [Concomitant]
     Route: 065
     Dates: end: 20130322

REACTIONS (1)
  - Diabetic gangrene [Fatal]
